FAERS Safety Report 6028661-4 (Version None)
Quarter: 2009Q1

REPORT INFORMATION
  Report Type: 
  Country: None (occurrence: None)
  Receive Date: 20090102
  Receipt Date: 20081216
  Transmission Date: 20090719
  Serious: Yes (Hospitalization)
  Sender: FDA-Public Use
  Company Number: 1000003262

PATIENT
  Age: 80 Year
  Sex: Female
  Weight: 80 kg

DRUGS (7)
  1. MEMANTINE HCL [Suspect]
     Indication: DEMENTIA ALZHEIMER'S TYPE
     Dosage: 10 MG (5 MG, 2 IN 1 D), ORAL
     Route: 048
     Dates: end: 20081104
  2. EQUANIL [Concomitant]
  3. HEMIGOXINE [Concomitant]
  4. NEBILOX [Concomitant]
  5. EFFEXOR [Concomitant]
  6. KARDEGIC [Concomitant]
  7. MOPRAK [Concomitant]

REACTIONS (1)
  - TACHYCARDIA PAROXYSMAL [None]
